FAERS Safety Report 19008304 (Version 1)
Quarter: 2021Q1

REPORT INFORMATION
  Report Type: Spontaneous
  Country: US (occurrence: US)
  Receive Date: 20210315
  Receipt Date: 20210315
  Transmission Date: 20210420
  Serious: Yes (Other)
  Sender: FDA-Public Use
  Company Number: US-GLAXOSMITHKLINE-US2021GSK034906

PATIENT
  Sex: Male

DRUGS (8)
  1. ZANTAC [Suspect]
     Active Substance: RANITIDINE HYDROCHLORIDE
     Indication: VOMITING
     Dosage: UNK, QD
     Route: 065
     Dates: start: 199001, end: 201910
  2. RANITIDINE. [Suspect]
     Active Substance: RANITIDINE
     Indication: VOMITING
     Dosage: UNK, QD
     Route: 065
     Dates: start: 199001, end: 201910
  3. RANITIDINE CAPSULE [Suspect]
     Active Substance: RANITIDINE
     Indication: PAIN
  4. ZANTAC [Suspect]
     Active Substance: RANITIDINE HYDROCHLORIDE
     Indication: PAIN
  5. ZANTAC [Suspect]
     Active Substance: RANITIDINE HYDROCHLORIDE
     Indication: VOMITING
     Dosage: UNK, QD
     Route: 065
     Dates: start: 199001, end: 201910
  6. ZANTAC [Suspect]
     Active Substance: RANITIDINE HYDROCHLORIDE
     Indication: PAIN
  7. RANITIDINE. [Suspect]
     Active Substance: RANITIDINE
     Indication: PAIN
  8. RANITIDINE CAPSULE [Suspect]
     Active Substance: RANITIDINE
     Indication: VOMITING
     Dosage: UNK, QD
     Route: 065
     Dates: start: 199001, end: 201910

REACTIONS (1)
  - Gastric cancer [Unknown]
